FAERS Safety Report 20979615 (Version 1)
Quarter: 2022Q2

REPORT INFORMATION
  Report Type: Spontaneous
  Country: US (occurrence: US)
  Receive Date: 20220620
  Receipt Date: 20220620
  Transmission Date: 20220721
  Serious: Yes (Other)
  Sender: FDA-Public Use
  Company Number: US-NOVARTISPH-NVSC2022US140006

PATIENT

DRUGS (3)
  1. OXALIPLATIN [Suspect]
     Active Substance: OXALIPLATIN
     Indication: Neuroendocrine tumour
     Dosage: 100 MG/M2, Q2W
     Route: 042
  2. GEMCITABINE [Concomitant]
     Active Substance: GEMCITABINE
     Indication: Neuroendocrine tumour
     Dosage: 1000 MG/M2, Q2W
     Route: 042
  3. LENVATINIB [Concomitant]
     Active Substance: LENVATINIB
     Indication: Neuroendocrine tumour
     Dosage: 8 MG, QD
     Route: 048

REACTIONS (2)
  - Neuropathy peripheral [Unknown]
  - Product use in unapproved indication [Unknown]
